FAERS Safety Report 5640925-2 (Version None)
Quarter: 2008Q1

REPORT INFORMATION
  Report Type: 
  Country: None (occurrence: None)
  Receive Date: 20080225
  Receipt Date: 20080212
  Transmission Date: 20080703
  Serious: Yes (Other)
  Sender: FDA-Public Use
  Company Number: WAES 0802USA03245

PATIENT
  Age: 82 Year

DRUGS (2)
  1. PRINIVIL [Suspect]
     Dosage: 40 MG/DAILY/PO
     Route: 048
  2. IRBESARTAN [Suspect]
     Dosage: 300 MG/DAILY

REACTIONS (2)
  - NEPHROPATHY [None]
  - RENAL FAILURE [None]
